FAERS Safety Report 8550489-1 (Version None)
Quarter: 2012Q3

REPORT INFORMATION
  Report Type: 
  Country: None (occurrence: None)
  Receive Date: 20120730
  Receipt Date: 20120716
  Transmission Date: 20120928
  Serious: Yes (Hospitalization, Other)
  Sender: FDA-Public Use
  Company Number: US-ELI_LILLY_AND_COMPANY-US201207005213

PATIENT
  Sex: Female

DRUGS (1)
  1. ZYPREXA ZYDIS [Suspect]
     Dosage: 5 MG, UNK

REACTIONS (2)
  - GASTROSTOMY TUBE INSERTION [None]
  - HOSPITALISATION [None]
